FAERS Safety Report 7190521-3 (Version None)
Quarter: 2010Q4

REPORT INFORMATION
  Report Type: 
  Country: None (occurrence: None)
  Receive Date: 20101213
  Receipt Date: 20101129
  Transmission Date: 20110411
  Serious: Yes (Other)
  Sender: FDA-Public Use
  Company Number: 1000015705

PATIENT
  Age: 50 Year
  Sex: Female

DRUGS (3)
  1. ESCITALOPRAM [Suspect]
     Dosage: 5 MG (5 MG, 1 IN 1 D, ORAL
     Route: 048
  2. TEMESTA (LORAZEPAM) (LORAZEPAM) [Concomitant]
  3. STILNOX (ZOLPIDEM) (TABLETS) (ZOLPIDEM) [Concomitant]

REACTIONS (7)
  - AGITATION [None]
  - BLOOD GLUCOSE DECREASED [None]
  - ERECTILE DYSFUNCTION [None]
  - LOSS OF LIBIDO [None]
  - POLYDIPSIA [None]
  - POLYURIA [None]
  - THIRST [None]
